FAERS Safety Report 9050753 (Version 1)
Quarter: 2013Q1

REPORT INFORMATION
  Report Type: Spontaneous
  Country: BE (occurrence: BE)
  Receive Date: 20130205
  Receipt Date: 20130205
  Transmission Date: 20140127
  Serious: Yes (Other)
  Sender: FDA-Public Use
  Company Number: BE-GENZYME-CAMP-1002411

PATIENT
  Sex: 0

DRUGS (2)
  1. CAMPATH [Suspect]
     Indication: PROGRESSIVE MULTIPLE SCLEROSIS
     Dosage: UNK
     Route: 065
  2. CORTISONE [Suspect]
     Indication: PRODUCT USED FOR UNKNOWN INDICATION
     Dosage: UNK
     Route: 065

REACTIONS (8)
  - Transaminases increased [Unknown]
  - Cholestasis [Unknown]
  - Hyperthyroidism [Unknown]
  - Off label use [Unknown]
  - Pruritus [Unknown]
  - Influenza like illness [Unknown]
  - Pyrexia [Unknown]
  - Rash [Unknown]
